FAERS Safety Report 8009127-9 (Version None)
Quarter: 2011Q4

REPORT INFORMATION
  Report Type: 
  Country: None (occurrence: None)
  Receive Date: 20111227
  Receipt Date: 20111221
  Transmission Date: 20120403
  Serious: Yes (Other)
  Sender: FDA-Public Use
  Company Number: BR-ELI_LILLY_AND_COMPANY-BR201112006415

PATIENT
  Sex: Female
  Weight: 65 kg

DRUGS (6)
  1. LANTUS [Concomitant]
     Dosage: UNK, UNKNOWN
     Route: 065
  2. HUMALOG [Suspect]
     Dosage: UNK, UNKNOWN
     Route: 065
  3. ALISKIREN [Concomitant]
     Dosage: UNK, UNKNOWN
     Route: 065
  4. HUMALOG [Suspect]
     Dosage: UNK, UNKNOWN
     Route: 065
     Dates: start: 20010101
  5. SAXAGLIPTIN [Concomitant]
     Dosage: UNK, UNKNOWN
     Route: 065
  6. HUMALOG [Suspect]
     Indication: TYPE 1 DIABETES MELLITUS
     Dosage: UNK, UNKNOWN
     Route: 065
     Dates: start: 20111209

REACTIONS (3)
  - HEADACHE [None]
  - MALAISE [None]
  - HYPOGLYCAEMIA [None]
